FAERS Safety Report 21527203 (Version 1)
Quarter: 2022Q4

REPORT INFORMATION
  Report Type: Spontaneous
  Country: US (occurrence: None)
  Receive Date: 20221031
  Receipt Date: 20221031
  Transmission Date: 20230112
  Serious: Yes (Other)
  Sender: FDA-Public Use
  Company Number: US-MLMSERVICE-20221018-3866230-2

PATIENT
  Age: 70 Year
  Sex: Male

DRUGS (1)
  1. METHOTREXATE [Suspect]
     Active Substance: METHOTREXATE
     Indication: Product used for unknown indication
     Dosage: 15 MG MTX DAILY FOR 16 DAYS INSTEAD OF WEEKLY.
     Route: 065

REACTIONS (10)
  - Overdose [Unknown]
  - Inappropriate schedule of product administration [Unknown]
  - Stomatitis [Recovering/Resolving]
  - Diarrhoea [Recovering/Resolving]
  - Toxicity to various agents [Recovering/Resolving]
  - Oliguria [Recovering/Resolving]
  - Tachycardia [Recovering/Resolving]
  - Nausea [Recovering/Resolving]
  - Blood creatinine abnormal [Recovering/Resolving]
  - Pancytopenia [Recovering/Resolving]
